FAERS Safety Report 8129962-6 (Version None)
Quarter: 2012Q1

REPORT INFORMATION
  Report Type: 
  Country: None (occurrence: None)
  Receive Date: 20120210
  Receipt Date: 20120207
  Transmission Date: 20120608
  Serious: Yes (Hospitalization)
  Sender: FDA-Public Use
  Company Number: US-ROCHE-1027046

PATIENT
  Sex: Male

DRUGS (4)
  1. PEGINTERFERON ALFA-2A [Suspect]
     Indication: HEPATITIS C
     Route: 058
     Dates: start: 20110930, end: 20120130
  2. COPEGUS [Suspect]
     Indication: HEPATITIS C
     Route: 023
     Dates: start: 20110930
  3. COPEGUS [Suspect]
     Route: 023
     Dates: end: 20120130
  4. BOCEPREVIR [Suspect]
     Indication: HEPATITIS C
     Dates: start: 20110930, end: 20120130

REACTIONS (5)
  - ANAEMIA [None]
  - PNEUMONIA [None]
  - CHILLS [None]
  - RENAL FAILURE [None]
  - NO THERAPEUTIC RESPONSE [None]
